FAERS Safety Report 9356351 (Version 2)
Quarter: 2013Q4

REPORT INFORMATION
  Report Type: Spontaneous
  Country: US (occurrence: US)
  Receive Date: 20130619
  Receipt Date: 20131002
  Transmission Date: 20140711
  Serious: No
  Sender: FDA-Public Use
  Company Number: US-009507513-1305USA017942

PATIENT
  Age: 65 Year
  Sex: Female
  Weight: 63.39 kg

DRUGS (12)
  1. CLARITIN [Suspect]
     Indication: HYPERSENSITIVITY
     Dosage: 10 MG, QD
     Route: 048
     Dates: start: 20130518, end: 20130519
  2. CLARITIN [Suspect]
     Indication: SNEEZING
  3. CLARITIN [Suspect]
     Indication: LACRIMATION INCREASED
  4. RED YEAST [Concomitant]
     Indication: BLOOD CHOLESTEROL INCREASED
     Dosage: UNK, UNKNOWN
  5. UBIDECARENONE [Concomitant]
     Indication: BLOOD CHOLESTEROL INCREASED
     Dosage: UNK, UNKNOWN
  6. CYANOCOBALAMIN [Concomitant]
     Indication: PRODUCT USED FOR UNKNOWN INDICATION
     Dosage: UNK, UNKNOWN
  7. CALCIUM (UNSPECIFIED) [Concomitant]
     Indication: PRODUCT USED FOR UNKNOWN INDICATION
     Dosage: UNK, UNKNOWN
  8. MAGNESIUM (UNSPECIFIED) [Concomitant]
     Indication: PRODUCT USED FOR UNKNOWN INDICATION
     Dosage: UNK, UNKNOWN
  9. POTASSIUM (UNSPECIFIED) [Concomitant]
     Indication: PRODUCT USED FOR UNKNOWN INDICATION
     Dosage: UNK, UNKNOWN
  10. VITAMIN E [Concomitant]
     Indication: PRODUCT USED FOR UNKNOWN INDICATION
     Dosage: UNK, UNKNOWN
  11. ASCORBIC ACID [Concomitant]
     Indication: PRODUCT USED FOR UNKNOWN INDICATION
     Dosage: UNK, UNKNOWN
  12. FLAXSEED [Concomitant]
     Indication: PRODUCT USED FOR UNKNOWN INDICATION
     Dosage: UNK, UNKNOWN

REACTIONS (3)
  - Dizziness [Recovered/Resolved]
  - Somnolence [Recovered/Resolved]
  - Drug ineffective [Unknown]
